FAERS Safety Report 18067372 (Version 14)
Quarter: 2024Q3

REPORT INFORMATION
  Report Type: Report from Study
  Country: IT (occurrence: IT)
  Receive Date: 20200724
  Receipt Date: 20240705
  Transmission Date: 20241016
  Serious: Yes (Other)
  Sender: ROCHE
  Company Number: IT-ROCHE-2646589

PATIENT
  Age: 36 Year
  Sex: Female

DRUGS (36)
  1. OCRELIZUMAB [Suspect]
     Active Substance: OCRELIZUMAB
     Indication: Relapsing-remitting multiple sclerosis
     Dosage: 300 MG/250 ML
     Route: 042
     Dates: start: 20190905, end: 20190905
  2. OCRELIZUMAB [Suspect]
     Active Substance: OCRELIZUMAB
     Dosage: 300 MG/250 ML
     Route: 042
     Dates: start: 20190923, end: 20190923
  3. OCRELIZUMAB [Suspect]
     Active Substance: OCRELIZUMAB
     Dosage: 600 MG/500 ML
     Route: 042
     Dates: start: 20200708, end: 20200708
  4. OCRELIZUMAB [Suspect]
     Active Substance: OCRELIZUMAB
     Dosage: 600 MG/500 ML
     Route: 042
     Dates: start: 20210119, end: 20210119
  5. OCRELIZUMAB [Suspect]
     Active Substance: OCRELIZUMAB
     Dosage: 600 MG/500 ML
     Route: 042
     Dates: start: 20210712, end: 20210712
  6. OCRELIZUMAB [Suspect]
     Active Substance: OCRELIZUMAB
     Dosage: 600 MG/500 ML
     Route: 042
     Dates: start: 20220126, end: 20220126
  7. OCRELIZUMAB [Suspect]
     Active Substance: OCRELIZUMAB
     Dosage: 600 MG/500 ML
     Route: 042
     Dates: start: 20220725, end: 20220725
  8. OCRELIZUMAB [Suspect]
     Active Substance: OCRELIZUMAB
     Dosage: 600 MG/500 ML
     Route: 042
     Dates: start: 20230126, end: 20230126
  9. OCRELIZUMAB [Suspect]
     Active Substance: OCRELIZUMAB
     Route: 042
     Dates: start: 20230731, end: 20230731
  10. OCRELIZUMAB [Suspect]
     Active Substance: OCRELIZUMAB
     Route: 042
  11. SOLU-MEDROL [Concomitant]
     Active Substance: METHYLPREDNISOLONE SODIUM SUCCINATE
     Indication: Premedication
     Dosage: FREQUENCY: ONCE BEFORE INFUSION? FREQUENCY TEXT:ONCE BEFORE INFUSION
     Route: 042
     Dates: start: 20220126, end: 20220126
  12. SOLU-MEDROL [Concomitant]
     Active Substance: METHYLPREDNISOLONE SODIUM SUCCINATE
     Dosage: DATE OF TREATMENT: 19/JAN/2021, 12/JUL/2021? FREQUENCY TEXT:ONCE BEFORE INFUSION
     Route: 042
     Dates: start: 20200708, end: 20200708
  13. SOLU-MEDROL [Concomitant]
     Active Substance: METHYLPREDNISOLONE SODIUM SUCCINATE
     Dosage: FREQUENCY: ONCE BEFORE INFUSION? FREQUENCY TEXT:ONCE BEFORE INFUSION
     Route: 042
     Dates: start: 20210712, end: 20210712
  14. SOLU-MEDROL [Concomitant]
     Active Substance: METHYLPREDNISOLONE SODIUM SUCCINATE
     Dosage: FREQUENCY: ONCE BEFORE INFUSION? FREQUENCY TEXT:ONCE BEFORE INFUSION
     Route: 042
     Dates: start: 20210119, end: 20210119
  15. SOLU-MEDROL [Concomitant]
     Active Substance: METHYLPREDNISOLONE SODIUM SUCCINATE
     Dosage: FREQUENCY TEXT:ONCE BEFORE INFUSION
     Route: 042
     Dates: start: 20230126, end: 20230126
  16. SOLU-MEDROL [Concomitant]
     Active Substance: METHYLPREDNISOLONE SODIUM SUCCINATE
     Dosage: FREQUENCY TEXT:ONCE BEFORE INFUSION
     Route: 042
     Dates: start: 20220725, end: 20220725
  17. SOLU-MEDROL [Concomitant]
     Active Substance: METHYLPREDNISOLONE SODIUM SUCCINATE
     Dosage: FREQUENCY TEXT:ONCE BEFORE INFUSION
     Route: 042
     Dates: start: 20190905, end: 20190905
  18. SOLU-MEDROL [Concomitant]
     Active Substance: METHYLPREDNISOLONE SODIUM SUCCINATE
     Dosage: FREQUENCY TEXT:ONCE BEFORE INFUSION
     Route: 042
     Dates: start: 20190923, end: 20190923
  19. ACETAMINOPHEN [Concomitant]
     Active Substance: ACETAMINOPHEN
     Indication: Premedication
     Dosage: FREQUENCY TEXT:ONCE BEFORE INFUSION
     Route: 042
     Dates: start: 20200708, end: 20200708
  20. ACETAMINOPHEN [Concomitant]
     Active Substance: ACETAMINOPHEN
     Dosage: DATE OF TREATMENT: 23/SEP/2019, 08/JUL/2020, 19/JAN/2021, 12/JUL/2021, 26/JAN/2022, 25/JUL/2022, 26/
     Route: 042
     Dates: start: 20190905, end: 20190905
  21. PANTOPRAZOLE SODIUM [Concomitant]
     Active Substance: PANTOPRAZOLE SODIUM
     Indication: Premedication
     Dosage: FREQUENCY TEXT:ONCE BEFORE INFUSION
     Route: 042
     Dates: start: 20200708, end: 20200708
  22. PREGABALIN [Concomitant]
     Active Substance: PREGABALIN
     Route: 048
     Dates: start: 20181208, end: 20211013
  23. CINNARIZINE [Concomitant]
     Active Substance: CINNARIZINE
     Indication: Headache
     Route: 048
     Dates: start: 20191216, end: 20200912
  24. CINNARIZINE [Concomitant]
     Active Substance: CINNARIZINE
     Route: 048
     Dates: start: 20181208, end: 20191216
  25. METHYLPREDNISOLONE [Concomitant]
     Active Substance: METHYLPREDNISOLONE
     Indication: Multiple sclerosis
     Route: 042
     Dates: start: 20200131, end: 20200202
  26. METHYLPREDNISOLONE [Concomitant]
     Active Substance: METHYLPREDNISOLONE
     Route: 048
     Dates: start: 20200203, end: 20200204
  27. VENLAFAXINE [Concomitant]
     Active Substance: VENLAFAXINE HYDROCHLORIDE
     Indication: Headache
     Route: 048
     Dates: start: 20191216, end: 20211013
  28. ELETRIPTAN HYDROBROMIDE [Concomitant]
     Active Substance: ELETRIPTAN HYDROBROMIDE
     Indication: Headache
     Dosage: 1 TABLET? FREQUENCY TEXT:AS NEEDED
     Route: 048
     Dates: start: 20200131, end: 20201012
  29. ZANTAC [Concomitant]
     Active Substance: RANITIDINE HYDROCHLORIDE
     Indication: Premedication
     Dosage: FREQUENCY TEXT:ONCE BEFORE INFUSION
     Route: 042
     Dates: start: 20190905, end: 20190905
  30. ZANTAC [Concomitant]
     Active Substance: RANITIDINE HYDROCHLORIDE
     Dosage: FREQUENCY TEXT:ONCE BEFORE INFUSION
     Route: 042
     Dates: start: 20190923, end: 20190923
  31. RELPAX [Concomitant]
     Active Substance: ELETRIPTAN HYDROBROMIDE
     Dosage: 1 OTHER
     Route: 065
     Dates: start: 20210701, end: 20211013
  32. RELPAX [Concomitant]
     Active Substance: ELETRIPTAN HYDROBROMIDE
     Dosage: 1 UNIT?1 U?MS SYMPTOMATIC TREATMENTS
     Route: 048
     Dates: start: 20220404, end: 20230731
  33. TRIMETON [Concomitant]
     Active Substance: CHLORPHENIRAMINE MALEATE
     Indication: Premedication
     Dosage: DATE OF TREATMENT: 19/JAN/2021, 12/JUL/2021, 26/JAN/2022, 25/JUL/2022, 26/JAN/2023? FREQUENCY TEXT:O
     Route: 042
     Dates: start: 20200708, end: 20200708
  34. AMITRIPTYLINE HYDROCHLORIDE\CHLORDIAZEPOXIDE HYDROCHLORIDE [Concomitant]
     Active Substance: AMITRIPTYLINE HYDROCHLORIDE\CHLORDIAZEPOXIDE HYDROCHLORIDE
     Dosage: 1 TABLET
     Route: 048
     Dates: start: 20201012
  35. INDOMETHACIN [Concomitant]
     Active Substance: INDOMETHACIN
     Dosage: 1 CAPSULE
     Route: 048
     Dates: start: 20201012, end: 20211013
  36. MODERNA COVID-19 VACCINE [Concomitant]
     Active Substance: ELASOMERAN
     Dosage: DOSE: 1 U?2ND DOSE: 10/MAY/2021; 3RD DOSE: 10/NOV/2021?VACCINE? FREQUENCY TEXT:OTHER
     Route: 030
     Dates: start: 20210412, end: 20210412

REACTIONS (2)
  - C-reactive protein increased [Recovered/Resolved]
  - Escherichia infection [Recovered/Resolved]

NARRATIVE: CASE EVENT DATE: 20200423
